FAERS Safety Report 4683469-7 (Version None)
Quarter: 2005Q2

REPORT INFORMATION
  Report Type: 
  Country: None (occurrence: None)
  Receive Date: 20050602
  Receipt Date: 20050329
  Transmission Date: 20051028
  Serious: No
  Sender: FDA-Public Use
  Company Number: 200510617BWH

PATIENT
  Age: 79 Year
  Sex: Male

DRUGS (3)
  1. LEVITRA [Suspect]
     Indication: ERECTILE DYSFUNCTION
     Dosage: 10 MG; 20 MG : TOTAL DAILY; ORAL
     Route: 048
     Dates: start: 20050327
  2. LEVITRA [Suspect]
     Indication: ERECTILE DYSFUNCTION
     Dosage: 10 MG; 20 MG : TOTAL DAILY; ORAL
     Route: 048
     Dates: start: 20050328
  3. FISH OIL [Concomitant]

REACTIONS (1)
  - ERECTILE DYSFUNCTION [None]
